FAERS Safety Report 4970441-2 (Version None)
Quarter: 2006Q2

REPORT INFORMATION
  Report Type: 
  Country: None (occurrence: None)
  Receive Date: 20060406
  Receipt Date: 20060328
  Transmission Date: 20061013
  Serious: Yes (Life-Threatening, Hospitalization)
  Sender: FDA-Public Use
  Company Number: 2006-03-1790

PATIENT
  Age: 43 Year
  Sex: Female
  Weight: 80 kg

DRUGS (6)
  1. RIBAVIRIN [Suspect]
     Indication: HEPATITIS C
     Dosage: 400 MG QAM ORAL
     Route: 048
     Dates: start: 20060127, end: 20060217
  2. PEGASYS [Suspect]
     Indication: HEPATITIS C
     Dosage: 180 MCG/WEEK SUBCUTANEOU
     Route: 058
     Dates: start: 20060127, end: 20060217
  3. VENLAFAXINE HCL [Concomitant]
  4. VALPROATE SODIUM [Concomitant]
  5. METHADONE [Concomitant]
  6. SPIRONOLACTONE [Concomitant]

REACTIONS (2)
  - HAEMOPTYSIS [None]
  - PNEUMONIA [None]
